FAERS Safety Report 8235391-7 (Version None)
Quarter: 2012Q1

REPORT INFORMATION
  Report Type: 
  Country: None (occurrence: None)
  Receive Date: 20120326
  Receipt Date: 20120321
  Transmission Date: 20120608
  Serious: No
  Sender: FDA-Public Use
  Company Number: US-PFIZER INC-2012074173

PATIENT
  Sex: Male
  Weight: 58.05 kg

DRUGS (9)
  1. VICODIN ES [Concomitant]
     Indication: PAIN
     Dosage: UNK
  2. PREZISTA [Concomitant]
     Indication: ACQUIRED IMMUNODEFICIENCY SYNDROME
     Dosage: DAILY
  3. TRUVADA [Concomitant]
     Indication: ACQUIRED IMMUNODEFICIENCY SYNDROME
     Dosage: 200/300 MG, DAILY
  4. ISENTRESS [Concomitant]
     Indication: ACQUIRED IMMUNODEFICIENCY SYNDROME
     Dosage: 400 MG, 2X/DAY
  5. SOMA [Concomitant]
     Indication: PAIN
     Dosage: 350 MG, AS NEEDED
  6. VIAGRA [Suspect]
     Indication: ERECTILE DYSFUNCTION
     Dosage: 100 MG, AS NEEDED
     Dates: start: 20110101, end: 20111201
  7. NORVIR [Concomitant]
     Indication: ACQUIRED IMMUNODEFICIENCY SYNDROME
     Dosage: 100 MG, DAILY
  8. CLONAZEPAM [Concomitant]
     Indication: SLEEP DISORDER
     Dosage: UNK, AS NEEDED
  9. BACTRIM [Concomitant]
     Indication: ACQUIRED IMMUNODEFICIENCY SYNDROME
     Dosage: UNK

REACTIONS (1)
  - ERECTILE DYSFUNCTION [None]
